FAERS Safety Report 24152135 (Version 1)
Quarter: 2024Q3

REPORT INFORMATION
  Report Type: Report from Study
  Country: US (occurrence: US)
  Receive Date: 20240730
  Receipt Date: 20240730
  Transmission Date: 20241016
  Serious: Yes (Hospitalization)
  Sender: ROCHE
  Company Number: US-ROCHE-10000032126

PATIENT
  Age: 40 Year
  Sex: Male

DRUGS (1)
  1. ALECENSA [Suspect]
     Active Substance: ALECTINIB HYDROCHLORIDE
     Indication: Lung neoplasm malignant
     Dosage: TOMAR 4 CAPSULA(S) DOS VECES AL DIA- TAKE 4 CAPSULES TWICE A DAY
     Route: 048

REACTIONS (2)
  - Drug hypersensitivity [Unknown]
  - Liver disorder [Unknown]
